FAERS Safety Report 5922156-1 (Version None)
Quarter: 2008Q4

REPORT INFORMATION
  Report Type: 
  Country: None (occurrence: None)
  Receive Date: 20081017
  Receipt Date: 20081008
  Transmission Date: 20090506
  Serious: Yes (Other)
  Sender: FDA-Public Use
  Company Number: US-BAYER-200814015BCC

PATIENT
  Age: 76 Year
  Sex: Female
  Weight: 54 kg

DRUGS (5)
  1. ASPIRIN [Suspect]
     Indication: ISCHAEMIC HEART DISEASE PROPHYLAXIS
     Dosage: UNIT DOSE: 81 MG
     Dates: start: 20041001, end: 20071001
  2. LOPRESSOR [Concomitant]
  3. PREMARIN [Concomitant]
  4. PREVACID [Concomitant]
  5. COQ10 [Concomitant]

REACTIONS (1)
  - GASTRIC ULCER HAEMORRHAGE [None]
